FAERS Safety Report 6382377-3 (Version None)
Quarter: 2009Q3

REPORT INFORMATION
  Report Type: 
  Country: None (occurrence: None)
  Receive Date: 20090928
  Receipt Date: 20090928
  Transmission Date: 20100115
  Serious: Yes (Other)
  Sender: FDA-Public Use
  Company Number: None

PATIENT
  Age: 94 Year
  Sex: Female
  Weight: 61.2356 kg

DRUGS (1)
  1. CARAFATE [Suspect]
     Indication: ULCER
     Dosage: 2 TSP. 4 TIMES A DAY
     Dates: start: 20090809

REACTIONS (2)
  - AGEUSIA [None]
  - TONGUE COATED [None]
